FAERS Safety Report 24366266 (Version 1)
Quarter: 2024Q3

REPORT INFORMATION
  Report Type: Spontaneous
  Country: US (occurrence: US)
  Receive Date: 20240926
  Receipt Date: 20240926
  Transmission Date: 20241016
  Serious: No
  Sender: BLUEPRINT MEDICINES
  Company Number: US-Blueprint Medicines Corporation-4857

PATIENT
  Sex: Female

DRUGS (1)
  1. AYVAKIT [Suspect]
     Active Substance: AVAPRITINIB
     Indication: Systemic mastocytosis
     Route: 065
     Dates: start: 20240610

REACTIONS (5)
  - Fatigue [Recovering/Resolving]
  - Unevaluable event [Unknown]
  - Lethargy [Unknown]
  - Blood potassium decreased [Unknown]
  - Blood creatinine increased [Unknown]
